FAERS Safety Report 9682661 (Version 1)
Quarter: 2013Q4

REPORT INFORMATION
  Report Type: Spontaneous
  Country: US (occurrence: US)
  Receive Date: 20131112
  Receipt Date: 20131112
  Transmission Date: 20140711
  Serious: No
  Sender: FDA-Public Use
  Company Number: US-009507513-1311USA003489

PATIENT
  Age: 49 Year
  Sex: Female

DRUGS (1)
  1. PROVENTIL [Suspect]
     Indication: ASTHMA
     Dosage: 2 DF, QID; TWO INHALATIONS FOUR TIMES A DAY.INHR EA 90MCG 1 STANDARD DOSE OF 6.7
     Route: 055
     Dates: start: 20131102

REACTIONS (3)
  - Speech disorder [Unknown]
  - Drug dose omission [Unknown]
  - Product quality issue [Unknown]
